FAERS Safety Report 5711898-9 (Version None)
Quarter: 2008Q2

REPORT INFORMATION
  Report Type: 
  Country: None (occurrence: None)
  Receive Date: 20080421
  Receipt Date: 20080411
  Transmission Date: 20081010
  Serious: Yes (Other)
  Sender: FDA-Public Use
  Company Number: CN-PFIZER INC-2008033659

PATIENT
  Age: 37 Year
  Sex: Male

DRUGS (1)
  1. CELEBREX [Suspect]
     Indication: PROCEDURAL PAIN
     Route: 048
     Dates: start: 20070101, end: 20070101

REACTIONS (2)
  - MUSCLE ATROPHY [None]
  - OEDEMA PERIPHERAL [None]
